FAERS Safety Report 6010985-8 (Version None)
Quarter: 2008Q4

REPORT INFORMATION
  Report Type: 
  Country: None (occurrence: None)
  Receive Date: 20081218
  Receipt Date: 20081212
  Transmission Date: 20090506
  Serious: Yes (Hospitalization)
  Sender: FDA-Public Use
  Company Number: B0550191A

PATIENT
  Age: 28 Year
  Sex: Male

DRUGS (3)
  1. ZYBAN [Suspect]
     Route: 048
     Dates: start: 20080825, end: 20080907
  2. NIQUITIN [Concomitant]
     Route: 023
  3. BROMAZEPAM [Concomitant]

REACTIONS (9)
  - AGGRESSION [None]
  - AGITATION [None]
  - CONFUSIONAL STATE [None]
  - CONVULSION [None]
  - DISORIENTATION [None]
  - FALL [None]
  - HEAD INJURY [None]
  - LOSS OF CONSCIOUSNESS [None]
  - OVERDOSE [None]
